FAERS Safety Report 24821619 (Version 1)
Quarter: 2025Q1

REPORT INFORMATION
  Report Type: Spontaneous
  Country: US (occurrence: None)
  Receive Date: 20250108
  Receipt Date: 20250108
  Transmission Date: 20250409
  Serious: No
  Sender: FDA-CTU
  Company Number: None

PATIENT
  Age: 73 Year
  Sex: Male
  Weight: 67.59 kg

DRUGS (1)
  1. COSENTYX [Suspect]
     Active Substance: SECUKINUMAB
     Indication: Psoriasis
     Dosage: FREQUENCY : WEEKLY;?
     Route: 058
     Dates: start: 202108

REACTIONS (1)
  - Respiratory disorder [None]
